FAERS Safety Report 8616303-0 (Version None)
Quarter: 2012Q3

REPORT INFORMATION
  Report Type: 
  Country: None (occurrence: None)
  Receive Date: 20120823
  Receipt Date: 20120801
  Transmission Date: 20120928
  Serious: No
  Sender: FDA-Public Use
  Company Number: US-009507513-1208USA002040

PATIENT

DRUGS (2)
  1. DULERA [Suspect]
     Dosage: 200/5, 2 PUFFS A DAY
     Dates: start: 20120630
  2. FLOVENT [Concomitant]

REACTIONS (2)
  - OEDEMA PERIPHERAL [None]
  - SWELLING FACE [None]
